FAERS Safety Report 6387814-6 (Version None)
Quarter: 2009Q4

REPORT INFORMATION
  Report Type: 
  Country: None (occurrence: None)
  Receive Date: 20091005
  Receipt Date: 20090923
  Transmission Date: 20100525
  Serious: Yes (Hospitalization)
  Sender: FDA-Public Use
  Company Number: US-ELI_LILLY_AND_COMPANY-US200908004187

PATIENT
  Sex: Female
  Weight: 49.433 kg

DRUGS (11)
  1. FORTEO [Suspect]
     Indication: OSTEOPOROSIS
     Dosage: 20 UG, EACH EVENING
     Route: 058
     Dates: start: 20090512
  2. CALCIUM [Concomitant]
     Dosage: 500 MG, 2/D
  3. VITAMIN D [Concomitant]
     Dosage: 1 D/F, 2/D
  4. DILTIAZEM [Concomitant]
     Dates: end: 20090301
  5. DILTIAZEM [Concomitant]
     Dosage: 30 MG, 2/D
     Dates: start: 20090301
  6. PLAVIX [Concomitant]
     Dosage: 75 MG, DAILY (1/D)
  7. VASOTEC [Concomitant]
     Dosage: 20 MG, 2/D
  8. NITROGLYCERIN [Concomitant]
     Indication: CHEST PAIN
     Dosage: 0.4 MG, AS NEEDED
  9. DOXAZOSIN MESYLATE [Concomitant]
     Dosage: 1 MG, DAILY (1/D)
     Route: 048
     Dates: start: 20090801
  10. DIAMOX /00016901/ [Concomitant]
     Dosage: 500 MG, 2/D
  11. ASPIRIN [Concomitant]
     Dosage: 1 MG, DAILY (1/D)

REACTIONS (1)
  - ASTHENIA [None]
